FAERS Safety Report 7016593-4 (Version None)
Quarter: 2010Q3

REPORT INFORMATION
  Report Type: 
  Country: None (occurrence: None)
  Receive Date: 20100923
  Receipt Date: 20100916
  Transmission Date: 20110219
  Serious: Yes (Hospitalization)
  Sender: FDA-Public Use
  Company Number: 2010SP014679

PATIENT
  Age: 62 Year
  Sex: Male

DRUGS (2)
  1. MIRTAZAPINE [Suspect]
     Indication: DEPRESSION
     Dosage: 15 MG; QD; PO, 30 MG; QD; PO
     Route: 048
     Dates: start: 20100112, end: 20100113
  2. MIRTAZAPINE [Suspect]
     Indication: DEPRESSION
     Dosage: 15 MG; QD; PO, 30 MG; QD; PO
     Route: 048
     Dates: start: 20100114, end: 20100115

REACTIONS (9)
  - ACTIVATION SYNDROME [None]
  - AGITATION [None]
  - AKATHISIA [None]
  - ANXIETY [None]
  - HEADACHE [None]
  - IMPULSIVE BEHAVIOUR [None]
  - INSOMNIA [None]
  - IRRITABILITY [None]
  - RESTLESSNESS [None]
